FAERS Safety Report 12336563 (Version 1)
Quarter: 2016Q2

REPORT INFORMATION
  Report Type: Spontaneous
  Country: US (occurrence: None)
  Receive Date: 20160504
  Receipt Date: 20160504
  Transmission Date: 20160815
  Serious: Yes (Life-Threatening)
  Sender: FDA-Public Use
  Company Number: None

PATIENT
  Age: 58 Year

DRUGS (5)
  1. PROPRANANOL [Concomitant]
     Active Substance: PROPRANOLOL HYDROCHLORIDE
  2. BACLOFEN. [Concomitant]
     Active Substance: BACLOFEN
  3. MORPHINE E.R. [Concomitant]
  4. HARVONI [Concomitant]
     Active Substance: LEDIPASVIR\SOFOSBUVIR
  5. LYRICA [Suspect]
     Active Substance: PREGABALIN

REACTIONS (11)
  - Eye pain [None]
  - Angle closure glaucoma [None]
  - Insomnia [None]
  - Headache [None]
  - Weight increased [None]
  - Palpitations [None]
  - Panic attack [None]
  - Tinnitus [None]
  - Dyskinesia [None]
  - Dizziness [None]
  - Visual impairment [None]

NARRATIVE: CASE EVENT DATE: 20160414
